FAERS Safety Report 25899143 (Version 1)
Quarter: 2025Q4

REPORT INFORMATION
  Report Type: Spontaneous
  Country: US (occurrence: US)
  Receive Date: 20251009
  Receipt Date: 20251009
  Transmission Date: 20260117
  Serious: No
  Sender: ROCHE
  Company Number: US-ROCHE-10000400295

PATIENT
  Age: 40 Year
  Sex: Female
  Weight: 88 kg

DRUGS (2)
  1. XOLAIR [Suspect]
     Active Substance: OMALIZUMAB
     Indication: Urticaria
     Route: 058
     Dates: start: 20151010
  2. XOLAIR [Suspect]
     Active Substance: OMALIZUMAB
     Indication: Asthma
     Dosage: 225MG Q2 WEEKS BUT NOW 375 MCG 1 PUFF MONTHLY, 375MG Q4 WEEKS.
     Route: 058

REACTIONS (1)
  - Auricular swelling [Not Recovered/Not Resolved]

NARRATIVE: CASE EVENT DATE: 20250823
